FAERS Safety Report 7643804-4 (Version None)
Quarter: 2011Q3

REPORT INFORMATION
  Report Type: 
  Country: None (occurrence: None)
  Receive Date: 20110729
  Receipt Date: 20110726
  Transmission Date: 20111222
  Serious: Yes (Hospitalization, Other)
  Sender: FDA-Public Use
  Company Number: GB-SHIRE-CQT2-2007-00014

PATIENT

DRUGS (19)
  1. ANAGRELIDE HCL [Suspect]
     Dosage: 1 MG / 1.5 MG ALTERNATING DAILY
     Route: 048
     Dates: start: 20090214
  2. PEGINTERFERON ALFA-2A [Suspect]
     Indication: ESSENTIAL THROMBOCYTHAEMIA
     Dosage: 45 UG, 1X/WEEK
     Route: 058
     Dates: start: 20070301, end: 20070529
  3. AMITRIPTYLINE HCL [Concomitant]
     Indication: MIGRAINE
     Dosage: 10 MG, 1X/DAY:QD
     Route: 048
     Dates: start: 20070403, end: 20070501
  4. ANAGRELIDE HCL [Suspect]
     Indication: ESSENTIAL THROMBOCYTHAEMIA
     Dosage: 1.5 MG, 1X/DAY:QD
     Route: 048
     Dates: start: 20061222, end: 20070301
  5. PEGINTERFERON ALFA-2A [Suspect]
     Dosage: UNK, 1X/DAY:QD
     Route: 058
     Dates: start: 20000201, end: 20000601
  6. HYDROXYUREA [Suspect]
     Indication: ESSENTIAL THROMBOCYTHAEMIA
     Dosage: 1 G, 1X/DAY:QD
     Route: 048
     Dates: start: 19980101, end: 20061120
  7. ASPIRIN [Suspect]
     Indication: ESSENTIAL THROMBOCYTHAEMIA
     Dosage: 75 MG, 1X/DAY:QD
     Route: 048
     Dates: start: 20020101, end: 20020101
  8. TRAMADOL HCL [Concomitant]
     Indication: EAR PAIN
  9. ANAGRELIDE HCL [Suspect]
     Dosage: .5 MG, 2X/DAY:BID
     Route: 048
     Dates: start: 20070726, end: 20071218
  10. ANAGRELIDE HCL [Suspect]
     Dosage: 1.5 MG, 1X/DAY:QD
     Route: 048
     Dates: start: 20071118, end: 20071214
  11. ANAGRELIDE HCL [Suspect]
     Dosage: 1 MG, 1X/DAY:QD
     Route: 048
     Dates: start: 20080905, end: 20090213
  12. PEGINTERFERON ALFA-2A [Suspect]
     Dosage: 45 UG, 1X/WEEK
     Route: 058
     Dates: start: 20070718, end: 20070826
  13. ANAGRELIDE HCL [Suspect]
     Dosage: .5 MG, 2X/DAY:BID
     Route: 048
     Dates: start: 20070525, end: 20070718
  14. ANAGRELIDE HCL [Suspect]
     Dosage: 1.5 MG, 1X/DAY:QD
     Route: 048
     Dates: start: 20071222
  15. PEGINTERFERON ALFA-2A [Suspect]
     Dosage: 90 UG, 1X/WEEK
     Route: 058
     Dates: start: 20071218, end: 20071222
  16. HYDROXYUREA [Suspect]
     Dosage: 500 MG, 1X/DAY:QD
     Route: 048
     Dates: start: 19980101
  17. PEGINTERFERON ALFA-2A [Suspect]
     Dosage: 90 UG, 1X/WEEK
     Route: 058
     Dates: start: 20060814, end: 20061204
  18. ENOXAPARIN [Concomitant]
     Indication: THROMBOSIS PROPHYLAXIS
     Dosage: 40 MG, 1X/DAY:QD
     Route: 058
     Dates: start: 20070427, end: 20070617
  19. TRAMADOL HCL [Concomitant]
     Indication: MIGRAINE
     Dosage: 50 MG, 4X/DAY:QID
     Route: 048
     Dates: start: 20070525

REACTIONS (2)
  - ABORTION SPONTANEOUS [None]
  - MATERNAL EXPOSURE DURING PREGNANCY [None]
